FAERS Safety Report 6427397-5 (Version None)
Quarter: 2009Q4

REPORT INFORMATION
  Report Type: 
  Country: None (occurrence: None)
  Receive Date: 20091104
  Receipt Date: 20091023
  Transmission Date: 20100525
  Serious: Yes (Death, Life-Threatening, Hospitalization)
  Sender: FDA-Public Use
  Company Number: BR-PFIZER INC-2008100186

PATIENT
  Age: 78 Year
  Sex: Female
  Weight: 40 kg

DRUGS (8)
  1. EXEMESTANE [Suspect]
     Indication: BREAST CANCER
     Dosage: 25 MG, 1X/DAY
     Route: 048
     Dates: start: 20080805, end: 20081129
  2. CP-751,871 [Suspect]
     Indication: BREAST CANCER
     Dosage: 20 MG/KG (800 MG), EVERY 3 WEEKS
     Dates: start: 20080805
  3. SIMVASTATIN [Concomitant]
     Dosage: UNK
     Route: 048
     Dates: start: 20080701
  4. ATENOLOL [Concomitant]
     Dosage: UNK
     Route: 048
     Dates: start: 20080701
  5. METFORMIN [Concomitant]
     Dosage: UNK
     Route: 048
     Dates: start: 20080701
  6. OMEPRAZOLE [Concomitant]
     Dosage: UNK
     Route: 048
     Dates: start: 20080709
  7. ACETYLSALICYLIC ACID [Concomitant]
     Dosage: UNK
     Route: 048
     Dates: start: 20080701, end: 20081123
  8. ISORDIL [Concomitant]
     Dosage: UNK
     Route: 048
     Dates: start: 20080701

REACTIONS (7)
  - BRONCHOPNEUMONIA [None]
  - CEREBRAL HAEMORRHAGE [None]
  - FALL [None]
  - SENSORY LOSS [None]
  - SUBDURAL HAEMATOMA [None]
  - TRAUMATIC BRAIN INJURY [None]
  - URINARY TRACT INFECTION [None]
